FAERS Safety Report 8109499-0 (Version None)
Quarter: 2012Q1

REPORT INFORMATION
  Report Type: 
  Country: None (occurrence: None)
  Receive Date: 20120202
  Receipt Date: 20120112
  Transmission Date: 20120608
  Serious: No
  Sender: FDA-Public Use
  Company Number: US-AMGEN-USASP2012002412

PATIENT
  Age: 49 Year
  Sex: Male

DRUGS (1)
  1. ENBREL [Suspect]
     Indication: PSORIATIC ARTHROPATHY
     Dosage: 50 MG, QWK
     Dates: start: 20110831

REACTIONS (6)
  - PAIN OF SKIN [None]
  - MYALGIA [None]
  - HEADACHE [None]
  - EYE PAIN [None]
  - PYREXIA [None]
  - INFLUENZA [None]
